FAERS Safety Report 5857863-2 (Version None)
Quarter: 2008Q3

REPORT INFORMATION
  Report Type: 
  Country: None (occurrence: None)
  Receive Date: 20080826
  Receipt Date: 20080820
  Transmission Date: 20090109
  Serious: Yes (Other)
  Sender: FDA-Public Use
  Company Number: US-ASTRAZENECA-2005UW16951

PATIENT
  Age: 50 Year
  Sex: Female
  Weight: 53.1 kg

DRUGS (5)
  1. ARIMIDEX [Suspect]
     Indication: BREAST CANCER
     Route: 048
     Dates: start: 20051001
  2. LUPRON [Concomitant]
     Indication: BREAST CANCER
     Route: 030
     Dates: start: 20051001
  3. CLARITIN [Concomitant]
  4. FLONASE [Concomitant]
  5. CIPRO [Concomitant]

REACTIONS (14)
  - ARTHRALGIA [None]
  - BACK PAIN [None]
  - CARPAL TUNNEL SYNDROME [None]
  - DIZZINESS [None]
  - HEADACHE [None]
  - HOT FLUSH [None]
  - JOINT CREPITATION [None]
  - MOOD SWINGS [None]
  - MUSCLE SPASMS [None]
  - MYALGIA [None]
  - OEDEMA PERIPHERAL [None]
  - ROTATOR CUFF SYNDROME [None]
  - SINUSITIS [None]
  - TARSAL TUNNEL SYNDROME [None]
